FAERS Safety Report 9056264 (Version 1)
Quarter: 2013Q1

REPORT INFORMATION
  Report Type: Report from Study
  Country: JP (occurrence: JP)
  Receive Date: 20130205
  Receipt Date: 20130205
  Transmission Date: 20140127
  Serious: Yes (Other)
  Sender: FDA-Public Use
  Company Number: JP-AMGEN-JPNCT2012054891

PATIENT
  Age: 74 Year
  Sex: Male
  Weight: 64 kg

DRUGS (11)
  1. DARBEPOETIN ALFA [Suspect]
     Indication: NEPHROGENIC ANAEMIA
     Dosage: 60 MUG, Q4WK
     Route: 058
     Dates: start: 20111226, end: 20120220
  2. DARBEPOETIN ALFA [Suspect]
     Dosage: 120 MUG, Q4WK
     Route: 058
     Dates: start: 20120319
  3. DIOVAN [Concomitant]
     Dosage: UNK
     Route: 048
  4. PLETAAL [Concomitant]
     Dosage: UNK
     Route: 048
  5. TAKEPRON [Concomitant]
     Dosage: UNK
     Route: 048
  6. LASIX [Concomitant]
     Dosage: UNK
     Route: 048
  7. ALOSITOL [Concomitant]
     Dosage: UNK
     Route: 048
  8. EPADEL-S [Concomitant]
     Dosage: UNK
     Route: 048
  9. DORNER [Concomitant]
     Dosage: UNK
     Route: 048
  10. AVAPRO [Concomitant]
     Dosage: UNK
     Route: 048
  11. MUCOSOLVAN L [Concomitant]
     Dosage: UNK
     Route: 048

REACTIONS (1)
  - Diffuse large B-cell lymphoma [Not Recovered/Not Resolved]
